FAERS Safety Report 8952554 (Version 1)
Quarter: 2012Q4

REPORT INFORMATION
  Report Type: 
  Country: US (occurrence: US)
  Receive Date: 20121205
  Receipt Date: 20121205
  Transmission Date: 20130627
  Serious: Yes (Other)
  Sender: FDA-Public Use
  Company Number: US-PFIZER INC-2012267951

PATIENT
  Sex: Female

DRUGS (3)
  1. NEURONTIN [Suspect]
     Indication: HEART DISORDER
     Dosage: UNK, 2x/day
  2. NEURONTIN [Suspect]
     Dosage: UNK, 4x/day
  3. ZOLOFT [Suspect]
     Dosage: UNK

REACTIONS (2)
  - Cardiac disorder [Unknown]
  - Inappropriate schedule of drug administration [Unknown]
